FAERS Safety Report 7296370-X (Version None)
Quarter: 2011Q1

REPORT INFORMATION
  Report Type: 
  Country: None (occurrence: None)
  Receive Date: 20110211
  Receipt Date: 20110211
  Transmission Date: 20110831
  Serious: Yes (Other)
  Sender: FDA-Public Use
  Company Number: None

PATIENT
  Age: 52 Year
  Sex: Female
  Weight: 63.5036 kg

DRUGS (1)
  1. BUMEX [Suspect]
     Indication: CARDIOMYOPATHY
     Dosage: 3 TABS DAILY PO (ABOUT 5 DAYS)
     Route: 048
     Dates: start: 20101025, end: 20101028

REACTIONS (2)
  - DRUG INEFFECTIVE [None]
  - PRODUCT SUBSTITUTION ISSUE [None]
